FAERS Safety Report 7170331-3 (Version None)
Quarter: 2010Q4

REPORT INFORMATION
  Report Type: 
  Country: None (occurrence: None)
  Receive Date: 20101217
  Receipt Date: 20101213
  Transmission Date: 20110411
  Serious: Yes (Disabling, Other)
  Sender: FDA-Public Use
  Company Number: US-BRACCO-005113

PATIENT
  Sex: Female
  Weight: 149 kg

DRUGS (23)
  1. CONTRAST MEDIA [Suspect]
     Indication: NUCLEAR MAGNETIC RESONANCE IMAGING ABDOMINAL
     Dates: start: 20030913, end: 20030913
  2. CONTRAST MEDIA [Suspect]
     Indication: ANGIOGRAM
     Dates: start: 20030913, end: 20030913
  3. PROHANCE [Suspect]
     Indication: NUCLEAR MAGNETIC RESONANCE IMAGING
     Dates: start: 20071109, end: 20071109
  4. PROHANCE [Suspect]
     Indication: ANGIOGRAM
     Dates: start: 20070511, end: 20070511
  5. MULTIHANCE [Suspect]
     Indication: NUCLEAR MAGNETIC RESONANCE IMAGING
     Route: 042
     Dates: start: 20080304, end: 20080304
  6. PROCRIT [Concomitant]
  7. AMITRIPTYLINE [Concomitant]
  8. RENAGEL [Concomitant]
  9. SENSIPAR [Concomitant]
  10. FOSRENOL [Concomitant]
  11. HUMALOG [Concomitant]
  12. COREG [Concomitant]
  13. EPOGEN [Concomitant]
  14. CLONIDINE [Concomitant]
  15. PHOSLO [Concomitant]
  16. ASPIRIN [Concomitant]
  17. LANTUS [Concomitant]
  18. NORVASC [Concomitant]
  19. ALTACE [Concomitant]
  20. ROCALTROL [Concomitant]
  21. DIOVAN [Concomitant]
  22. IRON [Concomitant]
  23. MAGNEVIST [Suspect]
     Indication: NUCLEAR MAGNETIC RESONANCE IMAGING ABDOMINAL

REACTIONS (1)
  - NEPHROGENIC SYSTEMIC FIBROSIS [None]
